FAERS Safety Report 9274993 (Version 1)
Quarter: 2013Q2

REPORT INFORMATION
  Report Type: Spontaneous
  Country: PT (occurrence: PT)
  Receive Date: 20130507
  Receipt Date: 20130507
  Transmission Date: 20140414
  Serious: Yes (Death)
  Sender: FDA-Public Use
  Company Number: PT-ELI_LILLY_AND_COMPANY-PT201304008212

PATIENT
  Age: 81 Year
  Sex: Female

DRUGS (12)
  1. FORSTEO [Suspect]
     Indication: OSTEOPOROSIS
     Dosage: 20 UG, QD
     Route: 058
     Dates: start: 20120313
  2. PREDNISOLONE [Concomitant]
     Dosage: 5 MG, UNK
     Route: 048
  3. AZATHIOPRINE [Concomitant]
     Dosage: 100 MG, UNK
     Route: 048
  4. LANSOPRAZOLE [Concomitant]
     Dosage: 20 MG, UNK
     Route: 048
  5. ESCITALOPRAM [Concomitant]
     Dosage: 10 MG, UNK
     Route: 048
  6. CALCIUM [Concomitant]
     Dosage: 600 MG, UNK
     Route: 048
  7. CALCIFEDIOL [Concomitant]
     Dosage: 15 MG, UNK
     Route: 048
  8. PERINDOPRIL ARGININE [Concomitant]
     Dosage: 10 MG, UNK
     Route: 048
  9. INDAPAMIDE [Concomitant]
     Dosage: 2.5 MG, UNK
     Route: 048
  10. CYCLOBENZAPRINE HYDROCHLORIDE [Concomitant]
     Dosage: 10 MG, UNK
     Route: 048
  11. VALPROIC ACID                      /00228502/ [Concomitant]
     Dosage: 500 MG, UNK
     Route: 048
  12. AMIODARONE [Concomitant]
     Dosage: 200 MG, UNK
     Route: 048

REACTIONS (1)
  - Death [Fatal]
